FAERS Safety Report 6318838-2 (Version None)
Quarter: 2009Q3

REPORT INFORMATION
  Report Type: 
  Country: None (occurrence: None)
  Receive Date: 20090821
  Receipt Date: 20090811
  Transmission Date: 20100115
  Serious: Yes (Hospitalization)
  Sender: FDA-Public Use
  Company Number: ES-ELI_LILLY_AND_COMPANY-ES200908002737

PATIENT
  Age: 75 Year
  Sex: Female

DRUGS (2)
  1. FORTEO [Suspect]
     Indication: OSTEOPOROSIS
     Dosage: 20 UG, UNK
     Route: 058
     Dates: start: 20090401, end: 20090520
  2. ORFIDAL [Concomitant]
     Indication: INSOMNIA

REACTIONS (3)
  - ABDOMINAL MASS [None]
  - APPENDICITIS [None]
  - GASTROENTERITIS [None]
